FAERS Safety Report 6651522-4 (Version None)
Quarter: 2010Q1

REPORT INFORMATION
  Report Type: 
  Country: None (occurrence: None)
  Receive Date: 20100325
  Receipt Date: 20100316
  Transmission Date: 20100710
  Serious: Yes (Hospitalization)
  Sender: FDA-Public Use
  Company Number: A0799964A

PATIENT
  Age: 49 Year
  Sex: Male
  Weight: 134.1 kg

DRUGS (9)
  1. AVANDIA [Suspect]
     Indication: TYPE 2 DIABETES MELLITUS
     Dosage: 4MG PER DAY
     Route: 048
     Dates: end: 20070101
  2. PROZAC [Concomitant]
  3. METFORMIN HCL [Concomitant]
  4. ADVAIR DISKUS 100/50 [Concomitant]
  5. GEMFIBROZIL [Concomitant]
  6. LASIX [Concomitant]
  7. ZOCOR [Concomitant]
  8. RANITIDINE [Concomitant]
  9. INSULIN [Concomitant]

REACTIONS (20)
  - CARDIAC FAILURE CONGESTIVE [None]
  - CAROTID ARTERY STENOSIS [None]
  - CELLULITIS [None]
  - CEREBROVASCULAR ACCIDENT [None]
  - CEREBROVASCULAR DISORDER [None]
  - DENTAL CARIES [None]
  - DYSARTHRIA [None]
  - DYSPNOEA [None]
  - ECONOMIC PROBLEM [None]
  - EMPHYSEMA [None]
  - FALL [None]
  - HEMIPARESIS [None]
  - LACUNAR INFARCTION [None]
  - MITRAL VALVE DISEASE [None]
  - MITRAL VALVE INCOMPETENCE [None]
  - MYOCARDIAL INFARCTION [None]
  - NEUROMA [None]
  - PULMONARY CONGESTION [None]
  - STRESS [None]
  - TREATMENT NONCOMPLIANCE [None]
